FAERS Safety Report 17235166 (Version 1)
Quarter: 2020Q1

REPORT INFORMATION
  Report Type: Spontaneous
  Country: US (occurrence: US)
  Receive Date: 20200106
  Receipt Date: 20200106
  Transmission Date: 20200409
  Serious: No
  Sender: FDA-Public Use
  Company Number: US-AUROBINDO-AUR-APL-2019-066129

PATIENT
  Sex: Female

DRUGS (4)
  1. FEXOFENADINE TABLETS 180MG [Suspect]
     Active Substance: FEXOFENADINE HYDROCHLORIDE
     Indication: SINUSITIS
  2. PREDNISONE. [Concomitant]
     Active Substance: PREDNISONE
     Indication: PRODUCT USED FOR UNKNOWN INDICATION
     Dosage: UNK
     Route: 065
  3. SYNTHROID [Concomitant]
     Active Substance: LEVOTHYROXINE SODIUM
     Indication: PRODUCT USED FOR UNKNOWN INDICATION
     Dosage: UNK
     Route: 065
  4. FEXOFENADINE TABLETS 180MG [Suspect]
     Active Substance: FEXOFENADINE HYDROCHLORIDE
     Indication: HEAD DISCOMFORT
     Dosage: UNK
     Route: 065

REACTIONS (2)
  - Abdominal distension [Unknown]
  - Abdominal pain upper [Unknown]
